FAERS Safety Report 6456681-4 (Version None)
Quarter: 2009Q4

REPORT INFORMATION
  Report Type: 
  Country: None (occurrence: None)
  Receive Date: 20091124
  Receipt Date: 20091124
  Transmission Date: 20100525
  Serious: Yes (Hospitalization)
  Sender: FDA-Public Use
  Company Number: None

PATIENT
  Age: 73 Year
  Sex: Male
  Weight: 115 kg

DRUGS (7)
  1. DECITABINE [Suspect]
     Indication: ACUTE MYELOID LEUKAEMIA
     Dosage: 20 MG/M2, D1-5 IV
     Route: 042
     Dates: start: 20091102, end: 20091106
  2. ARSENIC TRIOXIDE [Suspect]
     Indication: ACUTE MYELOID LEUKAEMIA
     Dosage: 0.3 MG/KG D1-5 QW, IV
     Route: 042
     Dates: start: 20091102
  3. ARSENIC TRIOXIDE [Suspect]
     Indication: ACUTE MYELOID LEUKAEMIA
     Dosage: 0.3 MG/KG D1-5 QW, IV
     Route: 042
     Dates: start: 20091109
  4. ARSENIC TRIOXIDE [Suspect]
     Indication: ACUTE MYELOID LEUKAEMIA
     Dosage: 0.3 MG/KG D1-5 QW, IV
     Route: 042
     Dates: start: 20091109
  5. ASCORBIC ACID [Suspect]
     Indication: ACUTE MYELOID LEUKAEMIA
     Dosage: 1000 MG. D 1-5, QW, IV
     Route: 042
     Dates: start: 20091102
  6. ASCORBIC ACID [Suspect]
     Indication: ACUTE MYELOID LEUKAEMIA
     Dosage: 1000 MG. D 1-5, QW, IV
     Route: 042
     Dates: start: 20091109
  7. ASCORBIC ACID [Suspect]
     Indication: ACUTE MYELOID LEUKAEMIA
     Dosage: 1000 MG. D 1-5, QW, IV
     Route: 042
     Dates: start: 20091109

REACTIONS (4)
  - ABDOMINAL PAIN [None]
  - FATIGUE [None]
  - INFECTION [None]
  - PNEUMONIA [None]
